FAERS Safety Report 19482929 (Version 1)
Quarter: 2021Q3

REPORT INFORMATION
  Report Type: Spontaneous
  Country: US (occurrence: US)
  Receive Date: 20210701
  Receipt Date: 20210701
  Transmission Date: 20211014
  Serious: Yes (Hospitalization)
  Sender: FDA-Public Use
  Company Number: US-MYLANLABS-2021M1038505

PATIENT
  Age: 36 Year
  Sex: Female

DRUGS (7)
  1. WARFARIN [Interacting]
     Active Substance: WARFARIN
     Dosage: 15 MILLIGRAM, QDDOSE OF 12.5 MG/15 MG ALTERNATING DAILY
     Route: 065
     Dates: start: 20200228
  2. WARFARIN [Interacting]
     Active Substance: WARFARIN
     Dosage: ALTERNATING DOSAGE OF 5MG FOR 5 DAYS/WEEK AND 7.5MG FOR 2 DAYS/WEEK
     Route: 065
     Dates: start: 20200131
  3. WARFARIN [Interacting]
     Active Substance: WARFARIN
     Dosage: 7.5 MILLIGRAM, QDALTERNATING DOSAGE OF 5MG FOR 5 DAYS/WEEK AND 7.5MG FOR 2 DAYS/WEEK
     Route: 065
     Dates: start: 20200131
  4. WARFARIN [Suspect]
     Active Substance: WARFARIN
     Indication: THROMBOSIS PROPHYLAXIS
     Dosage: 2.5 MILLIGRAM, QD
     Route: 065
     Dates: start: 20200110
  5. WARFARIN [Interacting]
     Active Substance: WARFARIN
     Dosage: 5 MILLIGRAM, QDDOSE WAS INCREASED
     Route: 065
     Dates: start: 20200124
  6. WARFARIN [Interacting]
     Active Substance: WARFARIN
     Dosage: 12.5 MILLIGRAM, QDDOSE OF 12.5 MG/15 MG ALTERNATING DAILY
     Route: 065
     Dates: start: 20200228
  7. WARFARIN [Interacting]
     Active Substance: WARFARIN
     Dosage: 10 MILLIGRAM, QD
     Route: 065
     Dates: start: 20200214

REACTIONS (5)
  - Anticoagulation drug level below therapeutic [Recovered/Resolved]
  - Periorbital haematoma [Recovered/Resolved]
  - International normalised ratio increased [Recovered/Resolved]
  - Food interaction [Recovered/Resolved]
  - Ecchymosis [Recovered/Resolved]

NARRATIVE: CASE EVENT DATE: 202001
